FAERS Safety Report 17213831 (Version 1)
Quarter: 2019Q4

REPORT INFORMATION
  Report Type: Spontaneous
  Country: FR (occurrence: FR)
  Receive Date: 20191230
  Receipt Date: 20191230
  Transmission Date: 20200122
  Serious: Yes (Disabling)
  Sender: FDA-Public Use
  Company Number: FR-US-PROVELL PHARMACEUTICALS LLC-9033127

PATIENT
  Age: 51 Year
  Sex: Female
  Weight: 74 kg

DRUGS (1)
  1. LEVOTHYROX 100 NF [Suspect]
     Active Substance: LEVOTHYROXINE SODIUM
     Indication: HYPOTHYROIDISM
     Dates: start: 201704

REACTIONS (50)
  - Dizziness [Not Recovered/Not Resolved]
  - Colitis [Unknown]
  - Middle insomnia [Unknown]
  - Blood thyroid stimulating hormone increased [Not Recovered/Not Resolved]
  - Gamma-glutamyltransferase increased [Not Recovered/Not Resolved]
  - Bone pain [Not Recovered/Not Resolved]
  - Myalgia [Not Recovered/Not Resolved]
  - Vitiligo [Unknown]
  - Gait disturbance [Unknown]
  - Alopecia [Recovering/Resolving]
  - Parosmia [Unknown]
  - Cough [Unknown]
  - Palpitations [Not Recovered/Not Resolved]
  - Epistaxis [Not Recovered/Not Resolved]
  - Feeling of body temperature change [Not Recovered/Not Resolved]
  - Vision blurred [Not Recovered/Not Resolved]
  - Arthralgia [Not Recovered/Not Resolved]
  - Confusional state [Not Recovered/Not Resolved]
  - Trichorrhexis [Not Recovered/Not Resolved]
  - Migraine [Not Recovered/Not Resolved]
  - Hyperacusis [Unknown]
  - Vertigo [Not Recovered/Not Resolved]
  - Blood creatinine increased [Not Recovered/Not Resolved]
  - Blood triglycerides increased [Not Recovered/Not Resolved]
  - Alanine aminotransferase increased [Not Recovered/Not Resolved]
  - Aspartate aminotransferase increased [Not Recovered/Not Resolved]
  - Impaired work ability [Not Recovered/Not Resolved]
  - Tendon disorder [Not Recovered/Not Resolved]
  - Fibromyalgia [Unknown]
  - Nervousness [Not Recovered/Not Resolved]
  - Disability [Not Recovered/Not Resolved]
  - Blood cholesterol increased [Not Recovered/Not Resolved]
  - Language disorder [Unknown]
  - Muscle spasms [Not Recovered/Not Resolved]
  - Insomnia [Not Recovered/Not Resolved]
  - Endocrine disorder [Not Recovered/Not Resolved]
  - Memory impairment [Not Recovered/Not Resolved]
  - Blood thyroid stimulating hormone decreased [Not Recovered/Not Resolved]
  - Abdominal pain [Not Recovered/Not Resolved]
  - Disturbance in attention [Not Recovered/Not Resolved]
  - Blood thyroid stimulating hormone abnormal [Not Recovered/Not Resolved]
  - Nausea [Not Recovered/Not Resolved]
  - Depressive symptom [Not Recovered/Not Resolved]
  - Hyperreflexia [Unknown]
  - Hypoaesthesia [Unknown]
  - Weight increased [Recovering/Resolving]
  - Fatigue [Not Recovered/Not Resolved]
  - Serum ferritin increased [Not Recovered/Not Resolved]
  - Chronic idiopathic pain syndrome [Unknown]
  - Diarrhoea [Not Recovered/Not Resolved]

NARRATIVE: CASE EVENT DATE: 2017
